FAERS Safety Report 5838052-4 (Version None)
Quarter: 2008Q3

REPORT INFORMATION
  Report Type: 
  Country: None (occurrence: None)
  Receive Date: 20080808
  Receipt Date: 20080411
  Transmission Date: 20090109
  Serious: No
  Sender: FDA-Public Use
  Company Number: A0722374A

PATIENT
  Age: 48 Year
  Sex: Male

DRUGS (4)
  1. PAXIL [Suspect]
     Indication: OBSESSIVE-COMPULSIVE DISORDER
     Dosage: 60MG PER DAY
     Route: 048
     Dates: start: 20020101, end: 20070501
  2. RIVOTRIL [Concomitant]
  3. LIPITOR [Concomitant]
  4. EZETROL [Concomitant]

REACTIONS (1)
  - DRUG INEFFECTIVE [None]
